FAERS Safety Report 17231003 (Version 1)
Quarter: 2020Q1

REPORT INFORMATION
  Report Type: Spontaneous
  Country: US (occurrence: US)
  Receive Date: 20200103
  Receipt Date: 20200103
  Transmission Date: 20200409
  Serious: No
  Sender: FDA-Public Use
  Company Number: US-GALDERMA-US19046492

PATIENT
  Age: 66 Year
  Sex: Female

DRUGS (6)
  1. PROACTIV MD ADAPALENE ACNE TREATMENT [Suspect]
     Active Substance: ADAPALENE
     Indication: DARK CIRCLES UNDER EYES
     Dosage: 0.1%
     Route: 061
     Dates: start: 20190509, end: 20190629
  2. PROACTIV EYE BRIGHTENING SERUM [Concomitant]
     Active Substance: COSMETICS
     Indication: DARK CIRCLES UNDER EYES
     Route: 061
     Dates: start: 20190509, end: 20190629
  3. THYROID [Concomitant]
     Active Substance: LEVOTHYROXINE\LIOTHYRONINE
  4. PROACTIV MD DAILY OIL CONTROL SPF 30 [Suspect]
     Active Substance: AVOBENZONE\OCTISALATE\OCTOCRYLENE
     Indication: DARK CIRCLES UNDER EYES
     Route: 061
     Dates: start: 20190509, end: 20190629
  5. PROACTIV MD DEEP CLEANSING FACE WASH [Concomitant]
     Active Substance: COSMETICS
     Indication: DARK CIRCLES UNDER EYES
     Route: 061
     Dates: start: 20190509, end: 20190629
  6. PROACTIV GREEN TEA MOISTURIZER [Concomitant]
     Active Substance: COSMETICS
     Indication: DARK CIRCLES UNDER EYES
     Route: 061
     Dates: start: 20190509, end: 20190629

REACTIONS (4)
  - Product use in unapproved indication [Recovered/Resolved]
  - Skin discomfort [Not Recovered/Not Resolved]
  - Paraesthesia [Not Recovered/Not Resolved]
  - Rash papular [Not Recovered/Not Resolved]

NARRATIVE: CASE EVENT DATE: 20190509
